FAERS Safety Report 23936978 (Version 1)
Quarter: 2024Q2

REPORT INFORMATION
  Report Type: Spontaneous
  Country: SE (occurrence: SE)
  Receive Date: 20240604
  Receipt Date: 20240604
  Transmission Date: 20240715
  Serious: Yes (Other)
  Sender: FDA-Public Use
  Company Number: None

PATIENT
  Age: 24 Year
  Sex: Female

DRUGS (2)
  1. NAPROXEN [Suspect]
     Active Substance: NAPROXEN
     Indication: Myalgia
     Route: 050
     Dates: start: 20240507, end: 20240512
  2. NAPROXEN [Suspect]
     Active Substance: NAPROXEN
     Indication: Bone pain

REACTIONS (5)
  - Erythema [Recovered/Resolved]
  - Pharyngeal swelling [Recovered/Resolved]
  - Sensation of foreign body [Recovered/Resolved]
  - Pruritus [Recovered/Resolved]
  - Throat tightness [Recovered/Resolved]

NARRATIVE: CASE EVENT DATE: 20240512
